FAERS Safety Report 6286909-5 (Version None)
Quarter: 2009Q3

REPORT INFORMATION
  Report Type: 
  Country: None (occurrence: None)
  Receive Date: 20090724
  Receipt Date: 20090708
  Transmission Date: 20100115
  Serious: Yes (Other)
  Sender: FDA-Public Use
  Company Number: ACO_00570_2009

PATIENT
  Age: 56 Year
  Sex: Male

DRUGS (5)
  1. TIZANIDINE HYDROCHLORIDE [Suspect]
     Indication: DRUG USE FOR UNKNOWN INDICATION
     Dosage: 6 MG ORAL, 4 MG ORAL, 3 MG ORAL, 2 MG ORAL
     Route: 048
     Dates: start: 20090625, end: 20090626
  2. TIZANIDINE HYDROCHLORIDE [Suspect]
     Indication: DRUG USE FOR UNKNOWN INDICATION
     Dosage: 6 MG ORAL, 4 MG ORAL, 3 MG ORAL, 2 MG ORAL
     Route: 048
     Dates: start: 20090627, end: 20090627
  3. TIZANIDINE HYDROCHLORIDE [Suspect]
     Indication: DRUG USE FOR UNKNOWN INDICATION
     Dosage: 6 MG ORAL, 4 MG ORAL, 3 MG ORAL, 2 MG ORAL
     Route: 048
     Dates: start: 20090628, end: 20090628
  4. TIZANIDINE HYDROCHLORIDE [Suspect]
     Indication: DRUG USE FOR UNKNOWN INDICATION
     Dosage: 6 MG ORAL, 4 MG ORAL, 3 MG ORAL, 2 MG ORAL
     Route: 048
     Dates: start: 20090629, end: 20090629
  5. TIZANIDINE HYDROCHLORIDE [Suspect]
     Indication: DRUG USE FOR UNKNOWN INDICATION
     Dosage: 2 DF ORAL
     Route: 048
     Dates: start: 20090630

REACTIONS (2)
  - BLOOD PRESSURE DECREASED [None]
  - PAIN [None]
